FAERS Safety Report 19994955 (Version 1)
Quarter: 2021Q4

REPORT INFORMATION
  Report Type: Spontaneous
  Country: US (occurrence: US)
  Receive Date: 20211025
  Receipt Date: 20211025
  Transmission Date: 20220303
  Serious: Yes (Disabling)
  Sender: FDA-Public Use
  Company Number: None

PATIENT
  Age: 45 Year
  Sex: Female
  Weight: 76.5 kg

DRUGS (1)
  1. OXYCODONE [Suspect]
     Active Substance: OXYCODONE
     Indication: Pain

REACTIONS (5)
  - Diarrhoea [None]
  - Dizziness [None]
  - Gastric ulcer [None]
  - Pancreatic disorder [None]
  - Tinnitus [None]

NARRATIVE: CASE EVENT DATE: 20190104
